FAERS Safety Report 4940174-7 (Version None)
Quarter: 2006Q1

REPORT INFORMATION
  Report Type: 
  Country: None (occurrence: None)
  Receive Date: 20060310
  Receipt Date: 20050614
  Transmission Date: 20060701
  Serious: Yes (Hospitalization)
  Sender: FDA-Public Use
  Company Number: HQWYE508816JUN05

PATIENT
  Sex: Female

DRUGS (8)
  1. ENBREL [Suspect]
     Indication: RHEUMATOID ARTHRITIS
     Route: 058
     Dates: start: 20050527, end: 20050607
  2. PREDNISOLONE [Concomitant]
  3. PIROXICAM [Concomitant]
  4. LOXOPROFEN [Concomitant]
  5. CIMETIDINE [Concomitant]
  6. PYRIDOXAL PHOSPHAGE [Concomitant]
  7. TOCOPHERYL NICOTINATE [Concomitant]
  8. FLAVINE ADENINE DINUCLEOTIDE [Concomitant]

REACTIONS (1)
  - DRUG ERUPTION [None]
